FAERS Safety Report 9848578 (Version 1)
Quarter: 2013Q4

REPORT INFORMATION
  Report Type: Spontaneous
  Country: US (occurrence: None)
  Receive Date: 20131226
  Receipt Date: 20131226
  Transmission Date: 20140711
  Serious: Yes (Life-Threatening)
  Sender: FDA-Public Use
  Company Number: PHEH2013US001579

PATIENT
  Age: 59 Year
  Sex: Female

DRUGS (4)
  1. LOTREL [Suspect]
  2. TYKERB [Suspect]
     Indication: BREAST CANCER
     Dosage: 1 DF (1250), DAILY
     Dates: start: 201112
  3. XELODA (CAPECITABINE) [Concomitant]
  4. SYNTHROID (LEVOTHYROXINE SODIUM) [Concomitant]

REACTIONS (7)
  - Angioedema [None]
  - Swollen tongue [None]
  - Lip swelling [None]
  - Joint swelling [None]
  - Eating disorder [None]
  - Urticaria [None]
  - Pruritus [None]
